FAERS Safety Report 7346027-1 (Version None)
Quarter: 2011Q1

REPORT INFORMATION
  Report Type: 
  Country: None (occurrence: None)
  Receive Date: 20110311
  Receipt Date: 20110301
  Transmission Date: 20110831
  Serious: No
  Sender: FDA-Public Use
  Company Number: US-BIOGENIDEC-2011BI008212

PATIENT
  Age: 58 Year
  Sex: Female

DRUGS (1)
  1. AVONEX [Suspect]
     Indication: MULTIPLE SCLEROSIS
     Route: 030
     Dates: start: 19960701

REACTIONS (9)
  - MULTIPLE SCLEROSIS RELAPSE [None]
  - FEELING ABNORMAL [None]
  - FLUSHING [None]
  - NEURALGIA [None]
  - TOOTH ABSCESS [None]
  - DRUG HYPERSENSITIVITY [None]
  - MUSCLE SPASTICITY [None]
  - MYALGIA [None]
  - PYREXIA [None]
